FAERS Safety Report 8386324-4 (Version None)
Quarter: 2012Q2

REPORT INFORMATION
  Report Type: 
  Country: None (occurrence: None)
  Receive Date: 20120525
  Receipt Date: 20120402
  Transmission Date: 20120825
  Serious: No
  Sender: FDA-Public Use
  Company Number: US-VERTEX PHARMACEUTICALS INC.-AE-2012-003226

PATIENT
  Sex: Male

DRUGS (7)
  1. FLOVENT [Concomitant]
  2. SINGULAIR [Concomitant]
  3. MIRALAX [Concomitant]
  4. KALYDECO [Suspect]
     Indication: CYSTIC FIBROSIS
     Route: 048
     Dates: start: 20120208
  5. AZITHROMYCIN [Concomitant]
  6. PRILOSEC [Concomitant]
  7. PULMOZYME [Concomitant]

REACTIONS (15)
  - ARTHRALGIA [None]
  - NAUSEA [None]
  - POOR QUALITY SLEEP [None]
  - DECREASED APPETITE [None]
  - HEADACHE [None]
  - DIZZINESS [None]
  - STOMATITIS [None]
  - DIARRHOEA [None]
  - CHILLS [None]
  - ANGER [None]
  - AFFECT LABILITY [None]
  - FLATULENCE [None]
  - EMOTIONAL DISORDER [None]
  - MUSCULOSKELETAL PAIN [None]
  - NIGHTMARE [None]
